FAERS Safety Report 10793845 (Version 1)
Quarter: 2015Q1

REPORT INFORMATION
  Report Type: Spontaneous
  Country: US (occurrence: US)
  Receive Date: 20150213
  Receipt Date: 20150213
  Transmission Date: 20150721
  Serious: Yes (Death)
  Sender: FDA-Public Use
  Company Number: US-INCYTE CORPORATION-2015IN000541

PATIENT
  Age: 75 Year
  Sex: Female

DRUGS (15)
  1. JAKAFI [Suspect]
     Active Substance: RUXOLITINIB
     Indication: MYELOFIBROSIS
     Dosage: 10 MG, BID
     Route: 048
     Dates: start: 20131021
  2. OMEGA 3                            /01334101/ [Concomitant]
     Active Substance: OMEGA-3 FATTY ACIDS
  3. MAGNESIUM [Concomitant]
     Active Substance: MAGNESIUM
  4. LIPITOR [Concomitant]
     Active Substance: ATORVASTATIN CALCIUM
  5. COUMADIN [Concomitant]
     Active Substance: WARFARIN SODIUM
     Route: 048
  6. VITAMIN D3 [Concomitant]
     Active Substance: CHOLECALCIFEROL
  7. CO Q 10                            /00517201/ [Concomitant]
  8. IRON [Concomitant]
     Active Substance: IRON
  9. PAXIL [Concomitant]
     Active Substance: PAROXETINE HYDROCHLORIDE
  10. CALCITONIN [Concomitant]
     Active Substance: CALCITONIN
  11. ASPIRIN. [Concomitant]
     Active Substance: ASPIRIN
  12. LASIX [Concomitant]
     Active Substance: FUROSEMIDE
  13. ZEMPLAR [Concomitant]
     Active Substance: PARICALCITOL
  14. FISH OIL [Concomitant]
     Active Substance: FISH OIL
  15. MULTIVITAMIN                       /07504101/ [Concomitant]
     Active Substance: VITAMINS

REACTIONS (1)
  - Death [Fatal]

NARRATIVE: CASE EVENT DATE: 20150210
